FAERS Safety Report 7549031-3 (Version None)
Quarter: 2011Q2

REPORT INFORMATION
  Report Type: 
  Country: None (occurrence: None)
  Receive Date: 20110615
  Receipt Date: 20110608
  Transmission Date: 20111010
  Serious: Yes (Hospitalization)
  Sender: FDA-Public Use
  Company Number: SA-ROCHE-781379

PATIENT
  Age: 26 Year
  Sex: Female
  Weight: 75 kg

DRUGS (7)
  1. BACTRIM [Concomitant]
     Indication: PROPHYLAXIS
     Route: 048
     Dates: start: 20110528
  2. MYCOPHENOLATE MOFETIL [Suspect]
     Indication: IMMUNOSUPPRESSANT DRUG THERAPY
     Route: 048
     Dates: start: 20110528
  3. MYCOPHENOLATE MOFETIL [Suspect]
     Dosage: THERAPY ONGOING WITH 50 % DOSE REDUCTION
     Route: 048
  4. OMEPRAZOLE [Concomitant]
     Route: 048
     Dates: start: 20110528
  5. VALGANCICLOVIR [Concomitant]
     Indication: PROPHYLAXIS
     Route: 048
     Dates: start: 20110528
  6. PREDNISOLONE [Concomitant]
     Indication: IMMUNOSUPPRESSANT DRUG THERAPY
     Route: 048
     Dates: start: 20110528
  7. PROGRAF [Concomitant]
     Indication: IMMUNOSUPPRESSANT DRUG THERAPY
     Route: 048
     Dates: start: 20110528

REACTIONS (4)
  - BACK PAIN [None]
  - ABDOMINAL PAIN [None]
  - BLOOD AMYLASE INCREASED [None]
  - LIPASE INCREASED [None]
